FAERS Safety Report 19382663 (Version 1)
Quarter: 2021Q2

REPORT INFORMATION
  Report Type: Spontaneous
  Country: DE (occurrence: DE)
  Receive Date: 20210607
  Receipt Date: 20210607
  Transmission Date: 20210717
  Serious: Yes (Hospitalization)
  Sender: FDA-Public Use
  Company Number: DE-DSJP-DSE-2021-116432

PATIENT
  Age: 25 Year
  Sex: Male

DRUGS (2)
  1. ANTITHROMBOTIC AGENTS [Concomitant]
     Active Substance: UNSPECIFIED INGREDIENT
     Indication: PRODUCT USED FOR UNKNOWN INDICATION
     Dosage: UNK
  2. LIXIANA [Suspect]
     Active Substance: EDOXABAN TOSYLATE
     Indication: PRODUCT USED FOR UNKNOWN INDICATION
     Dosage: 60 MG, QD
     Route: 048

REACTIONS (4)
  - Nausea [Unknown]
  - Visual impairment [Unknown]
  - Photosensitivity reaction [Unknown]
  - Headache [Unknown]
